FAERS Safety Report 9989614 (Version 1)
Quarter: 2014Q1

REPORT INFORMATION
  Report Type: Report from Study
  Country: US (occurrence: US)
  Receive Date: 20140310
  Receipt Date: 20140310
  Transmission Date: 20141002
  Serious: No
  Sender: FDA-Public Use
  Company Number: US-ABBVIE-13P-163-1129820-00

PATIENT
  Sex: Female
  Weight: 74.91 kg

DRUGS (10)
  1. HUMIRA [Suspect]
     Indication: CROHN^S DISEASE
     Dosage: ONE DOSE
  2. HUMIRA [Suspect]
  3. HUMIRA [Suspect]
     Dates: end: 201212
  4. REMICADE [Concomitant]
     Indication: CROHN^S DISEASE
  5. ENJUVIA [Concomitant]
     Indication: HORMONE REPLACEMENT THERAPY
  6. IBUPROFEN [Concomitant]
     Indication: PAIN
  7. DEXILANT [Concomitant]
     Indication: GASTROOESOPHAGEAL REFLUX DISEASE
  8. TYLENOL #3 [Concomitant]
     Indication: PAIN
  9. NASONEX [Concomitant]
     Indication: HYPERSENSITIVITY
  10. VITAMINS [Concomitant]
     Indication: VITAMIN SUPPLEMENTATION

REACTIONS (3)
  - Rash pustular [Recovered/Resolved]
  - Rash papular [Recovered/Resolved]
  - Drug ineffective [Not Recovered/Not Resolved]
